FAERS Safety Report 6631608-0 (Version None)
Quarter: 2010Q1

REPORT INFORMATION
  Report Type: 
  Country: None (occurrence: None)
  Receive Date: 20100312
  Receipt Date: 20100302
  Transmission Date: 20100710
  Serious: Yes (Other)
  Sender: FDA-Public Use
  Company Number: MX-PFIZER INC-2010026923

PATIENT
  Age: 55 Year
  Sex: Male

DRUGS (8)
  1. EQUALTHA [Suspect]
     Indication: SYSTEMIC CANDIDA
     Dosage: 100 MG, 1X/DAY
     Route: 042
     Dates: start: 20100211, end: 20100301
  2. TPN [Concomitant]
  3. DORIPENEM [Concomitant]
     Dosage: UNK
     Dates: start: 20100206
  4. TEMPRA [Concomitant]
     Dosage: UNK
     Dates: start: 20100206
  5. RIVOTRIL [Concomitant]
     Dosage: 2 MG, 2X/DAY
     Dates: start: 20100206
  6. NORVASC [Concomitant]
     Indication: HYPERTENSION
     Dosage: 5 MG, 2X/DAY
     Route: 048
     Dates: start: 20090701
  7. NEXIUM [Concomitant]
     Dosage: UNK
     Dates: start: 20100223
  8. RANISEN [Concomitant]
     Dosage: UNK
     Dates: start: 20100223

REACTIONS (1)
  - PANCREATIC ENZYMES INCREASED [None]
